FAERS Safety Report 6757514-9 (Version None)
Quarter: 2010Q2

REPORT INFORMATION
  Report Type: 
  Country: None (occurrence: None)
  Receive Date: 20100607
  Receipt Date: 20100527
  Transmission Date: 20101027
  Serious: No
  Sender: FDA-Public Use
  Company Number: 2007BI002689

PATIENT
  Age: 59 Year
  Sex: Female

DRUGS (9)
  1. TYSABRI [Suspect]
     Indication: MULTIPLE SCLEROSIS
     Route: 042
     Dates: start: 20061207, end: 20070131
  2. TYSABRI [Suspect]
     Route: 042
     Dates: start: 20070307
  3. SERZONE [Concomitant]
  4. NEURONTIN [Concomitant]
  5. XANAX [Concomitant]
  6. LIPITOR [Concomitant]
  7. METFORMIN [Concomitant]
  8. BUMEX [Concomitant]
  9. BACLOFEN [Concomitant]

REACTIONS (2)
  - CLOSTRIDIAL INFECTION [None]
  - DIARRHOEA [None]
